FAERS Safety Report 7268117-4 (Version None)
Quarter: 2011Q1

REPORT INFORMATION
  Report Type: 
  Country: None (occurrence: None)
  Receive Date: 20110201
  Receipt Date: 20110128
  Transmission Date: 20110831
  Serious: No
  Sender: FDA-Public Use
  Company Number: US-PFIZER INC-2011020996

PATIENT
  Sex: Male
  Weight: 77.098 kg

DRUGS (1)
  1. VIAGRA [Suspect]
     Dosage: 50 MG, AS NEEDED
     Route: 048

REACTIONS (1)
  - HEART RATE INCREASED [None]
